FAERS Safety Report 16046218 (Version 18)
Quarter: 2020Q1

REPORT INFORMATION
  Report Type: Report from Study
  Country: CN (occurrence: CN)
  Receive Date: 20190307
  Receipt Date: 20200116
  Transmission Date: 20200409
  Serious: Yes (Hospitalization)
  Sender: FDA-Public Use
  Company Number: CN-ROCHE-2277099

PATIENT
  Age: 63 Year
  Sex: Male
  Weight: 55 kg

DRUGS (16)
  1. ATEZOLIZUMAB. [Suspect]
     Active Substance: ATEZOLIZUMAB
     Indication: TRIPLE NEGATIVE BREAST CANCER
     Dosage: ON 19/FEB/2019,HE RECEIVED THE MOST RECENT DOSE OF BLINDED ATEZOLIZUMAB 840 MG PRIOR TO AE
     Route: 042
     Dates: start: 20190121
  2. CIMETIDINE [Concomitant]
     Active Substance: CIMETIDINE
     Route: 065
     Dates: start: 20190226, end: 20190226
  3. L-GLUTAMINE [LEVOGLUTAMIDE] [Concomitant]
     Indication: GASTRIC ULCER
     Route: 065
     Dates: start: 20190306
  4. CIMETIDINE [Concomitant]
     Active Substance: CIMETIDINE
     Route: 065
     Dates: start: 20190129, end: 20190129
  5. BISMUTH POTASSIUM CITRATE [Concomitant]
     Indication: GASTRIC ULCER
     Route: 065
     Dates: start: 20190314
  6. CIMETIDINE [Concomitant]
     Active Substance: CIMETIDINE
     Route: 065
     Dates: start: 20190211, end: 20190211
  7. DIPHENHYDRAMINE HYDROCHLORIDE. [Concomitant]
     Active Substance: DIPHENHYDRAMINE HYDROCHLORIDE
     Route: 065
     Dates: start: 20190219, end: 20190219
  8. OXYCODONE;PARACETAMOL [Concomitant]
     Active Substance: ACETAMINOPHEN\OXYCODONE HYDROCHLORIDE
     Route: 065
     Dates: start: 20190219
  9. CIMETIDINE [Concomitant]
     Active Substance: CIMETIDINE
     Route: 065
     Dates: start: 20190219, end: 20190219
  10. DIPHENHYDRAMINE HYDROCHLORIDE. [Concomitant]
     Active Substance: DIPHENHYDRAMINE HYDROCHLORIDE
     Indication: PROPHYLAXIS
     Route: 065
     Dates: start: 20190121, end: 20190121
  11. DIPHENHYDRAMINE HYDROCHLORIDE. [Concomitant]
     Active Substance: DIPHENHYDRAMINE HYDROCHLORIDE
     Route: 065
     Dates: start: 20190226, end: 20190226
  12. CIMETIDINE [Concomitant]
     Active Substance: CIMETIDINE
     Indication: PROPHYLAXIS
     Route: 065
     Dates: start: 20190121, end: 20190121
  13. DIPHENHYDRAMINE HYDROCHLORIDE. [Concomitant]
     Active Substance: DIPHENHYDRAMINE HYDROCHLORIDE
     Route: 065
     Dates: start: 20190129, end: 20190129
  14. DIPHENHYDRAMINE HYDROCHLORIDE. [Concomitant]
     Active Substance: DIPHENHYDRAMINE HYDROCHLORIDE
     Route: 065
     Dates: start: 20190211, end: 20190211
  15. SODIUM GLUCONATE. [Concomitant]
     Active Substance: SODIUM GLUCONATE
     Indication: GASTRIC ULCER
     Route: 065
     Dates: start: 20190306
  16. PACLITAXEL. [Suspect]
     Active Substance: PACLITAXEL
     Indication: TRIPLE NEGATIVE BREAST CANCER
     Dosage: ON 26/FEB/2019, HE RECEIVED THE MOST RECENT DOSE (90 MG/M2) OF PACLITEXEL PRIOR TO AE
     Route: 042
     Dates: start: 20190121

REACTIONS (2)
  - Colitis [Recovered/Resolved]
  - Peptic ulcer [Recovered/Resolved]

NARRATIVE: CASE EVENT DATE: 20190301
